APPROVED DRUG PRODUCT: NORETHINDRONE AND ETHINYL ESTRADIOL
Active Ingredient: ETHINYL ESTRADIOL; NORETHINDRONE
Strength: 0.05MG;1MG
Dosage Form/Route: TABLET;ORAL-28
Application: A203006 | Product #001
Applicant: XIROMED LLC
Approved: Aug 5, 2013 | RLD: No | RS: No | Type: DISCN